FAERS Safety Report 5844593-6 (Version None)
Quarter: 2008Q3

REPORT INFORMATION
  Report Type: 
  Country: None (occurrence: None)
  Receive Date: 20080812
  Receipt Date: 20080725
  Transmission Date: 20090109
  Serious: Yes (Death, Other)
  Sender: FDA-Public Use
  Company Number: 2008BI017139

PATIENT
  Age: 59 Year
  Sex: Female

DRUGS (10)
  1. ZEVALIN [Suspect]
     Indication: NON-HODGKIN'S LYMPHOMA
     Dosage: 20 MCI;1X;IV
     Route: 042
     Dates: start: 20070830, end: 20070830
  2. RITUXIMAB [Concomitant]
  3. ETOPOSIDE [Concomitant]
  4. CYTARABINE [Concomitant]
  5. MELPHALAN [Concomitant]
  6. CARMUSTINE [Concomitant]
  7. SKENAN [Concomitant]
  8. TRANXENE [Concomitant]
  9. SOLU-MEDROL [Concomitant]
  10. PRIMEPRAN [Concomitant]

REACTIONS (21)
  - ABDOMINAL DISTENSION [None]
  - ABDOMINAL PAIN UPPER [None]
  - ASPIRATION [None]
  - BLOOD CULTURE POSITIVE [None]
  - CARDIO-RESPIRATORY ARREST [None]
  - CULTURE STOOL POSITIVE [None]
  - CYANOSIS [None]
  - DIARRHOEA [None]
  - DYSPNOEA [None]
  - ENTEROCOCCAL INFECTION [None]
  - FEBRILE BONE MARROW APLASIA [None]
  - FEBRILE NEUTROPENIA [None]
  - GASTROINTESTINAL SOUNDS ABNORMAL [None]
  - HYPOPROTEINAEMIA [None]
  - KLEBSIELLA INFECTION [None]
  - MUCOSAL INFLAMMATION [None]
  - NAUSEA [None]
  - PLEURAL EFFUSION [None]
  - SKIN DISORDER [None]
  - THROMBOCYTOPENIA [None]
  - VOMITING [None]
